FAERS Safety Report 5560015-7 (Version None)
Quarter: 2007Q4

REPORT INFORMATION
  Report Type: 
  Country: None (occurrence: None)
  Receive Date: 20071214
  Receipt Date: 20071029
  Transmission Date: 20080405
  Serious: No
  Sender: FDA-Public Use
  Company Number: US-ABBOTT-07P-163-0422690-00

PATIENT
  Sex: Female
  Weight: 47.67 kg

DRUGS (13)
  1. HUMIRA [Suspect]
     Indication: RHEUMATOID ARTHRITIS
     Route: 058
     Dates: start: 20070928
  2. SERTRALINE [Concomitant]
     Indication: DEPRESSION
     Route: 048
  3. METHYLPHENIDATE HCL [Concomitant]
     Indication: DRUG LEVEL INCREASED
     Dosage: 2 IN THE MORNING, 2 IN THE AFTERNOON AND 1 IN THE MID AFTERNOON
     Route: 048
  4. LANSOPRAZOLE [Concomitant]
     Indication: GASTROOESOPHAGEAL REFLUX DISEASE
     Route: 048
  5. TRAZODONE HCL [Concomitant]
     Indication: SLEEP DISORDER THERAPY
     Route: 048
  6. FLUTICASONE PROPIONATE [Concomitant]
     Indication: HYPERSENSITIVITY
     Dosage: 2 SQUIRTS
     Route: 045
  7. FEXOFENADINE [Concomitant]
     Indication: HYPERSENSITIVITY
     Route: 048
  8. PROCHLORPERAZINE EDISYLATE [Concomitant]
     Indication: NAUSEA
     Route: 048
  9. WELLBUTRIN XL [Concomitant]
     Indication: DEPRESSION
     Route: 048
  10. RALOXIFENE HYDROCHLORIDE [Concomitant]
     Indication: OSTEOPOROSIS
     Route: 048
  11. VALSARTAN [Concomitant]
     Indication: HYPERTENSION
     Route: 048
  12. DURAGESIC-100 [Concomitant]
     Indication: PAIN
     Route: 062
  13. TYLOX [Concomitant]
     Indication: PAIN
     Dosage: 7/325MG
     Route: 048

REACTIONS (1)
  - PROCEDURAL COMPLICATION [None]
